FAERS Safety Report 18640730 (Version 2)
Quarter: 2023Q2

REPORT INFORMATION
  Report Type: Spontaneous
  Country: AU (occurrence: AU)
  Receive Date: 20201221
  Receipt Date: 20230413
  Transmission Date: 20230721
  Serious: Yes (Hospitalization, Other)
  Sender: FDA-Public Use
  Company Number: AU-LUPIN PHARMACEUTICALS INC.-2020-10456

PATIENT
  Age: 7 Year
  Sex: Female

DRUGS (7)
  1. RIFAMPIN [Suspect]
     Active Substance: RIFAMPIN
     Indication: Meningitis tuberculous
     Dosage: 15 MILLIGRAM/KILOGRAM, QD
     Route: 065
  2. MOXIFLOXACIN [Suspect]
     Active Substance: MOXIFLOXACIN
     Indication: Meningitis tuberculous
     Dosage: 10 MILLIGRAM/KILOGRAM, QD
     Route: 065
  3. PYRAZINAMIDE [Suspect]
     Active Substance: PYRAZINAMIDE
     Indication: Meningitis tuberculous
     Dosage: 35 MILLIGRAM/KILOGRAM, QD
     Route: 065
  4. ISONIAZID [Suspect]
     Active Substance: ISONIAZID
     Indication: Meningitis tuberculous
     Dosage: 15 MILLIGRAM/KILOGRAM, QD
     Route: 065
  5. INFLIXIMAB [Concomitant]
     Active Substance: INFLIXIMAB
     Indication: Paradoxical drug reaction
     Dosage: 5 MILLIGRAM/KILOGRAM, UNK (2 DOSES AFTER 2 AND 6 WEEKS)
     Route: 065
  6. DEXAMETHASONE [Concomitant]
     Active Substance: DEXAMETHASONE
     Indication: Paradoxical drug reaction
     Dosage: 0.15 MILLIGRAM/KILOGRAM, QID
     Route: 042
  7. DEXAMETHASONE [Concomitant]
     Active Substance: DEXAMETHASONE
     Indication: Meningitis tuberculous
     Dosage: 0.15 MILLIGRAM/KILOGRAM, TID
     Route: 042

REACTIONS (2)
  - Arachnoiditis [Recovering/Resolving]
  - Paradoxical drug reaction [Recovering/Resolving]
